FAERS Safety Report 6371084-9 (Version None)
Quarter: 2009Q3

REPORT INFORMATION
  Report Type: 
  Country: None (occurrence: None)
  Receive Date: 20090923
  Receipt Date: 20090910
  Transmission Date: 20100115
  Serious: Yes (Other)
  Sender: FDA-Public Use
  Company Number: PHHY2009JP14655

PATIENT
  Sex: Female

DRUGS (7)
  1. TASIGNA [Suspect]
     Indication: CHRONIC MYELOID LEUKAEMIA
     Dosage: 800 MG DAILY
     Route: 048
     Dates: start: 20090407, end: 20090409
  2. LASIX [Concomitant]
     Dosage: 25 MG, UNK
     Route: 048
     Dates: start: 20080829
  3. ALDACTONE [Concomitant]
     Dosage: 25 MG, UNK
     Route: 048
     Dates: start: 20080829
  4. LIVACT [Concomitant]
     Dosage: 12.45 MG, UNK
     Dates: start: 20090203
  5. SALOBEL [Concomitant]
     Dosage: 100 MG
     Route: 048
     Dates: start: 20080903
  6. HUMALOG [Concomitant]
     Dosage: 14 IU, UNK
     Route: 058
     Dates: start: 20080806
  7. LANTUS [Concomitant]
     Dosage: 16 IU, UNK
     Route: 058
     Dates: start: 20080806

REACTIONS (5)
  - HYPERBILIRUBINAEMIA [None]
  - HYPERKALAEMIA [None]
  - NAUSEA [None]
  - RENAL DISORDER [None]
  - VOMITING [None]
